FAERS Safety Report 6285329-7 (Version None)
Quarter: 2009Q3

REPORT INFORMATION
  Report Type: 
  Country: None (occurrence: None)
  Receive Date: 20090723
  Receipt Date: 20090715
  Transmission Date: 20100115
  Serious: Yes (Hospitalization)
  Sender: FDA-Public Use
  Company Number: 2009EU002766

PATIENT
  Age: 47 Year
  Sex: Male

DRUGS (3)
  1. TACROLIMUS [Suspect]
     Indication: RENAL TRANSPLANT
     Dosage: /D
     Dates: start: 20090201, end: 20090202
  2. MYCOPHENOLATE MOFETIL [Suspect]
     Indication: RENAL TRANSPLANT
     Dosage: /D
     Dates: start: 20090201, end: 20090203
  3. CORTICOSTEROIDS() [Suspect]
     Indication: RENAL TRANSPLANT
     Dosage: /D
     Dates: start: 20090201, end: 20090203

REACTIONS (1)
  - CHOLECYSTITIS [None]
